FAERS Safety Report 5015920-7 (Version None)
Quarter: 2006Q2

REPORT INFORMATION
  Report Type: 
  Country: None (occurrence: None)
  Receive Date: 20060525
  Receipt Date: 20060504
  Transmission Date: 20061013
  Serious: Yes (Hospitalization)
  Sender: FDA-Public Use
  Company Number: GR200605001456

PATIENT
  Age: 70 Year
  Sex: Female

DRUGS (3)
  1. OLANZAPINE [Suspect]
     Dosage: 10 MG, DAILY (1/D), ORAL
     Route: 048
  2. AZATHIOPRINE [Concomitant]
  3. VALSARTAN [Concomitant]

REACTIONS (10)
  - BUNDLE BRANCH BLOCK LEFT [None]
  - CARDIAC FAILURE [None]
  - CORONARY ARTERY DISEASE [None]
  - DRUG INTERACTION [None]
  - ELECTROCARDIOGRAM QT CORRECTED INTERVAL PROLONGED [None]
  - ELECTROCARDIOGRAM QT PROLONGED [None]
  - LEUKOCYTOSIS [None]
  - PNEUMONIA [None]
  - TACHYPNOEA [None]
  - VENTRICULAR EXTRASYSTOLES [None]
